FAERS Safety Report 17610414 (Version 6)
Quarter: 2021Q2

REPORT INFORMATION
  Report Type: Spontaneous
  Country: US (occurrence: US)
  Receive Date: 20200401
  Receipt Date: 20210423
  Transmission Date: 20210716
  Serious: No
  Sender: FDA-Public Use
  Company Number: US-PFIZER INC-2020132166

PATIENT
  Age: 9 Year
  Sex: Female
  Weight: 25.4 kg

DRUGS (4)
  1. GENOTROPIN [Suspect]
     Active Substance: SOMATROPIN
     Dosage: 1.2 MG, UNK
  2. GENOTROPIN [Suspect]
     Active Substance: SOMATROPIN
     Indication: GROWTH HORMONE DEFICIENCY
     Dosage: 1MG, ONCE A DAY
     Route: 058
     Dates: start: 202001
  3. GENOTROPIN [Suspect]
     Active Substance: SOMATROPIN
     Dosage: 0.8 MG, DAILY
     Route: 058
  4. GENOTROPIN [Suspect]
     Active Substance: SOMATROPIN
     Dosage: 1.4 MG, NIGHTLY

REACTIONS (17)
  - Incorrect dose administered by device [Unknown]
  - Drug dose omission by device [Unknown]
  - Accidental exposure to product [Unknown]
  - Device mechanical issue [Unknown]
  - Injection site mass [Unknown]
  - Injection site vesicles [Recovering/Resolving]
  - Device breakage [Unknown]
  - Injection site discolouration [Recovering/Resolving]
  - Exposure via skin contact [Unknown]
  - Device use error [Unknown]
  - Drug ineffective [Recovering/Resolving]
  - Needle issue [Unknown]
  - Injection site haemorrhage [Unknown]
  - Device issue [Unknown]
  - Anxiety [Unknown]
  - Product storage error [Unknown]
  - Injection site urticaria [Unknown]

NARRATIVE: CASE EVENT DATE: 202003
